FAERS Safety Report 16844816 (Version 1)
Quarter: 2019Q3

REPORT INFORMATION
  Report Type: Spontaneous
  Country: CZ (occurrence: CZ)
  Receive Date: 20190924
  Receipt Date: 20190924
  Transmission Date: 20191005
  Serious: Yes (Other)
  Sender: FDA-Public Use
  Company Number: CZ-MYLANLABS-2019M1088685

PATIENT
  Age: 18 Year
  Sex: Female

DRUGS (6)
  1. ADRENALIN                          /00003901/ [Concomitant]
     Active Substance: EPINEPHRINE
     Dosage: 6 MG, UNK
     Route: 065
  2. ADRENALIN                          /00003901/ [Concomitant]
     Active Substance: EPINEPHRINE
     Indication: PRODUCT USED FOR UNKNOWN INDICATION
     Dosage: 1 MG, EVERY 3-5 MINS
     Route: 065
  3. NORCURON [Concomitant]
     Active Substance: VECURONIUM BROMIDE
     Indication: PRODUCT USED FOR UNKNOWN INDICATION
     Dosage: UNK
     Route: 065
  4. FENTANYL. [Suspect]
     Active Substance: FENTANYL
     Indication: PRODUCT USED FOR UNKNOWN INDICATION
     Dosage: UNK
     Route: 065
  5. NORADRENALIN                       /00127501/ [Concomitant]
     Active Substance: NOREPINEPHRINE\NOREPINEPHRINE BITARTRATE
     Indication: PRODUCT USED FOR UNKNOWN INDICATION
     Dosage: 0.4 UG/KG/MIN
     Route: 065
  6. MIDAZOLAM [Concomitant]
     Active Substance: MIDAZOLAM HYDROCHLORIDE
     Indication: PRODUCT USED FOR UNKNOWN INDICATION
     Dosage: UNK
     Route: 065

REACTIONS (6)
  - Amnesia [Unknown]
  - Hypokalaemia [Recovering/Resolving]
  - Upper respiratory tract infection bacterial [Unknown]
  - Hypotension [Unknown]
  - Troponin I increased [Unknown]
  - Chest pain [Unknown]
